FAERS Safety Report 8551912 (Version 2)
Quarter: 2012Q4

REPORT INFORMATION
  Report Type: Report from Study
  Country: BR (occurrence: BR)
  Receive Date: 20120508
  Receipt Date: 20121218
  Transmission Date: 20130627
  Serious: Yes (Hospitalization)
  Sender: FDA-Public Use
  Company Number: BR-ABBOTT-12P-020-0932087-00

PATIENT
  Age: 60 Year
  Sex: Female
  Weight: 80 kg

DRUGS (6)
  1. HUMIRA 40 MG/ 0.8 ML PRE-FILLED SYRINGE [Suspect]
     Indication: RHEUMATOID ARTHRITIS
     Route: 058
     Dates: start: 2009, end: 20120419
  2. ACTEMRA [Concomitant]
     Indication: PRODUCT USED FOR UNKNOWN INDICATION
     Route: 058
     Dates: start: 201207
  3. METFORMIN [Concomitant]
     Indication: DIABETES MELLITUS
     Dosage: 2550 mg daily
     Route: 048
     Dates: start: 2009
  4. ACTOS [Concomitant]
     Indication: DIABETES MELLITUS
     Route: 048
     Dates: start: 201204
  5. JANUVIA [Concomitant]
     Indication: DIABETES MELLITUS
     Route: 048
     Dates: start: 201204
  6. CALCIUM D [Concomitant]
     Indication: MINERAL SUPPLEMENTATION
     Dosage: 1 Tablet daily
     Route: 048
     Dates: start: 2002

REACTIONS (6)
  - Blood glucose increased [Unknown]
  - Immunodeficiency [Unknown]
  - Pyrexia [Unknown]
  - Pneumonia [Recovered/Resolved]
  - Asthenia [Unknown]
  - Dysstasia [Unknown]
